FAERS Safety Report 26058259 (Version 2)
Quarter: 2025Q4

REPORT INFORMATION
  Report Type: Spontaneous
  Country: NP (occurrence: NP)
  Receive Date: 20251118
  Receipt Date: 20251121
  Transmission Date: 20260117
  Serious: Yes (Hospitalization, Other)
  Sender: CHATTEM
  Company Number: NP-MLMSERVICE-20251110-PI706869-00197-1

PATIENT
  Age: 65 Year
  Sex: Male

DRUGS (1)
  1. LEVOCETIRIZINE [Suspect]
     Active Substance: LEVOCETIRIZINE
     Indication: Rhinitis allergic

REACTIONS (1)
  - Generalised bullous fixed drug eruption [Recovering/Resolving]
